FAERS Safety Report 5155619-X (Version None)
Quarter: 2006Q4

REPORT INFORMATION
  Report Type: 
  Country: None (occurrence: None)
  Receive Date: 20061114
  Receipt Date: 20061102
  Transmission Date: 20070319
  Serious: Yes (Hospitalization)
  Sender: FDA-Public Use
  Company Number: US-2006-034570

PATIENT
  Age: 78 Year
  Sex: Male
  Weight: 68 kg

DRUGS (3)
  1. BETAPACE [Suspect]
     Indication: ATRIAL FIBRILLATION
     Dosage: 160 MG/D, ORAL
     Route: 048
     Dates: start: 20060101
  2. COUMADIN [Concomitant]
  3. SYNTHROID [Concomitant]

REACTIONS (1)
  - BLOOD SODIUM DECREASED [None]
